FAERS Safety Report 5423299-1 (Version None)
Quarter: 2007Q3

REPORT INFORMATION
  Report Type: 
  Country: None (occurrence: None)
  Receive Date: 20070823
  Receipt Date: 20070814
  Transmission Date: 20080115
  Serious: Yes (Other)
  Sender: FDA-Public Use
  Company Number: PHHO2007BR13520

PATIENT
  Age: 72 Year
  Sex: Female
  Weight: 76 kg

DRUGS (8)
  1. DIOVAN HCT [Suspect]
     Indication: HYPERTENSION
     Route: 048
  2. METFORMIN HCL [Concomitant]
  3. PURAN T4 [Concomitant]
  4. ASPIRIN [Concomitant]
  5. LIPITOR [Concomitant]
  6. NEURONTIN [Concomitant]
  7. INSULIN [Concomitant]
  8. NOVORAPID [Concomitant]

REACTIONS (6)
  - BLOOD GLUCOSE FLUCTUATION [None]
  - FALL [None]
  - HUMERUS FRACTURE [None]
  - HYPOTENSION [None]
  - INTERNAL FIXATION OF FRACTURE [None]
  - MONOPLEGIA [None]
